FAERS Safety Report 4441799-8 (Version None)
Quarter: 2004Q3

REPORT INFORMATION
  Report Type: 
  Country: None (occurrence: None)
  Receive Date: 20040907
  Receipt Date: 20040819
  Transmission Date: 20050211
  Serious: Yes (Life-Threatening, Other)
  Sender: FDA-Public Use
  Company Number: 2004057948

PATIENT
  Sex: Male
  Weight: 70 kg

DRUGS (12)
  1. ZOLOFT [Suspect]
     Indication: DEPRESSION
     Dosage: 20 MG , ORAL
     Route: 048
     Dates: start: 20040515
  2. ERGENYL CHRONO (VALPROATE SODIUM, VALPROIC ACID) [Suspect]
     Indication: CONVULSION
     Dosage: 1000 MG
     Dates: start: 20040601
  3. DOXEPIN HYDROCHLORIDE (DOXEPIN HYDROCHLORIDE) [Concomitant]
  4. ASPIRIN [Concomitant]
  5. LOSARTAN POTASSWIUM (LOSARTAN PTOASSIUM) [Concomitant]
  6. ATORVASTATIN (ATORVASTATIN) [Concomitant]
  7. METFORMIN HCL [Concomitant]
  8. INSULIN [Concomitant]
  9. PENTOXIFLYLLINE (PENTOXIFYLLINE) [Concomitant]
  10. HEPARIN [Concomitant]
  11. CEFUROXIME SODIUM (CEFUROXIME SODIUM) [Concomitant]
  12. ANTIBIOTICS (ANTIBIOTICS) [Concomitant]

REACTIONS (4)
  - CONVULSION [None]
  - HEPATITIS TOXIC [None]
  - LIPASE INCREASED [None]
  - STAPHYLOCOCCAL SEPSIS [None]
